FAERS Safety Report 5820018-1 (Version None)
Quarter: 2008Q3

REPORT INFORMATION
  Report Type: 
  Country: None (occurrence: None)
  Receive Date: 20080718
  Receipt Date: 20080718
  Transmission Date: 20090109
  Serious: No
  Sender: FDA-Public Use
  Company Number: None

PATIENT
  Sex: Female
  Weight: 13.7 kg

DRUGS (1)
  1. LARONIDASE [Suspect]
     Indication: MUCOPOLYSACCHARIDOSIS IH
     Dosage: 7.83 MG WEEKLY IV
     Route: 042
     Dates: start: 20080327, end: 20080627

REACTIONS (3)
  - BODY TEMPERATURE INCREASED [None]
  - CYANOSIS [None]
  - POOR PERIPHERAL CIRCULATION [None]
